FAERS Safety Report 6004290-3 (Version None)
Quarter: 2008Q4

REPORT INFORMATION
  Report Type: 
  Country: None (occurrence: None)
  Receive Date: 20081215
  Receipt Date: 20081215
  Transmission Date: 20090506
  Serious: Yes (Other)
  Sender: FDA-Public Use
  Company Number: None

PATIENT
  Age: 23 Year
  Sex: Female
  Weight: 73.0291 kg

DRUGS (1)
  1. BACTRIM [Suspect]
     Indication: OTITIS MEDIA
     Dosage: 800MG 2X/DAY PO
     Route: 048
     Dates: start: 20081130, end: 20081207

REACTIONS (7)
  - BURNING SENSATION [None]
  - DISCOMFORT [None]
  - DRUG INEFFECTIVE [None]
  - PAIN [None]
  - PAIN IN EXTREMITY [None]
  - PRURITUS [None]
  - URTICARIA [None]
